FAERS Safety Report 9502222 (Version 1)
Quarter: 2013Q3

REPORT INFORMATION
  Report Type: Report from Study
  Country: FI (occurrence: FI)
  Receive Date: 20130906
  Receipt Date: 20130906
  Transmission Date: 20140515
  Serious: Yes (Other)
  Sender: FDA-Public Use
  Company Number: FI-ROCHE-1270393

PATIENT
  Sex: Female

DRUGS (1)
  1. AVASTIN [Suspect]
     Indication: OVARIAN EPITHELIAL CANCER
     Dosage: 15MG/KG EVERY THREE WEEKS. LAST AVASTIN INFUSION IN 11/JUL/2013.
     Route: 042
     Dates: start: 20121113

REACTIONS (2)
  - Proteinuria [Unknown]
  - Blood creatinine increased [Unknown]
